FAERS Safety Report 24314123 (Version 1)
Quarter: 2024Q3

REPORT INFORMATION
  Report Type: Spontaneous
  Country: US (occurrence: US)
  Receive Date: 20240912
  Receipt Date: 20240912
  Transmission Date: 20241016
  Serious: Yes (Death, Hospitalization, Other)
  Sender: MERCK
  Company Number: US-009507513-2409USA002441

PATIENT
  Age: 56 Year
  Sex: Male
  Weight: 77.8 kg

DRUGS (2)
  1. KEYTRUDA [Suspect]
     Active Substance: PEMBROLIZUMAB
     Indication: Squamous cell carcinoma
     Dosage: UNK
     Dates: start: 20240704
  2. SGN-PDL1V [Suspect]
     Active Substance: SGN-PDL1V
     Dosage: 1.5 MILLIGRAM/KILOGRAM, 2 Q3W
     Route: 042
     Dates: start: 20240816

REACTIONS (17)
  - Pneumonia aspiration [Fatal]
  - Cellulitis [Fatal]
  - Sepsis [Fatal]
  - Vomiting [Unknown]
  - Jugular vein thrombosis [Unknown]
  - Malignant neoplasm progression [Unknown]
  - Pericardial effusion malignant [Unknown]
  - Atrial thrombosis [Unknown]
  - Atrial fibrillation [Unknown]
  - Dysphagia [Unknown]
  - Neutropenia [Unknown]
  - Acute kidney injury [Unknown]
  - Nausea [Unknown]
  - Human rhinovirus test positive [Unknown]
  - Enterovirus test positive [Unknown]
  - Administration site extravasation [Unknown]
  - Metabolic acidosis [Unknown]

NARRATIVE: CASE EVENT DATE: 20240101
